FAERS Safety Report 23535672 (Version 3)
Quarter: 2024Q1

REPORT INFORMATION
  Report Type: Spontaneous
  Country: US (occurrence: US)
  Receive Date: 20240218
  Receipt Date: 20240319
  Transmission Date: 20240409
  Serious: No
  Sender: FDA-Public Use
  Company Number: US-BoehringerIngelheim-2024-BI-008976

PATIENT
  Age: 61 Year
  Sex: Female

DRUGS (1)
  1. COMBIVENT RESPIMAT [Suspect]
     Active Substance: ALBUTEROL SULFATE\IPRATROPIUM BROMIDE
     Indication: Product used for unknown indication
     Dosage: 2 PUFFS AT NIGHT (INHALATION)

REACTIONS (3)
  - Dyspnoea [Recovered/Resolved]
  - Product delivery mechanism issue [Unknown]
  - Off label use [Unknown]

NARRATIVE: CASE EVENT DATE: 20240201
